FAERS Safety Report 12847734 (Version 1)
Quarter: 2016Q4

REPORT INFORMATION
  Report Type: Spontaneous
  Country: US (occurrence: US)
  Receive Date: 20161013
  Receipt Date: 20161013
  Transmission Date: 20170207
  Serious: Yes (Other)
  Sender: FDA-Public Use
  Company Number: None

PATIENT
  Age: 5 Month
  Sex: Male
  Weight: 7.4 kg

DRUGS (2)
  1. PROBIOTICS [Concomitant]
     Active Substance: PROBIOTICS NOS
  2. BABY TEETHING (HYLAND HOMEOPATHIC) [Suspect]
     Active Substance: HOMEOPATHICS
     Indication: TEETHING
     Dosage: ?          QUANTITY:135 TABLET(S);?
     Route: 048

REACTIONS (5)
  - Tremor [None]
  - Muscle spasms [None]
  - Fatigue [None]
  - Constipation [None]
  - Seizure [None]

NARRATIVE: CASE EVENT DATE: 20160918
